FAERS Safety Report 7138722-4 (Version None)
Quarter: 2010Q4

REPORT INFORMATION
  Report Type: 
  Country: None (occurrence: None)
  Receive Date: 20101202
  Receipt Date: 20101202
  Transmission Date: 20110411
  Serious: Yes (Hospitalization)
  Sender: FDA-Public Use
  Company Number: None

PATIENT
  Age: 25 Year
  Sex: Female
  Weight: 56.246 kg

DRUGS (1)
  1. VANCOMYCIN [Suspect]
     Indication: COLITIS
     Dosage: 2 GRAM DAILY IV DRIP
     Route: 041
     Dates: start: 20101126, end: 20101126

REACTIONS (3)
  - FLUSHING [None]
  - INFUSION RELATED REACTION [None]
  - PRURITUS [None]
